FAERS Safety Report 4347856-9 (Version None)
Quarter: 2004Q2

REPORT INFORMATION
  Report Type: 
  Country: None (occurrence: None)
  Receive Date: 20040426
  Receipt Date: 20040415
  Transmission Date: 20050107
  Serious: No
  Sender: FDA-Public Use
  Company Number: 7832

PATIENT
  Age: 67 Year
  Sex: Female

DRUGS (1)
  1. PAMIDRONIC ACID [Suspect]
     Indication: HYPERCALCAEMIA
     Dosage: 60 MG ONCE
     Route: 042

REACTIONS (8)
  - DIPLOPIA [None]
  - DYSARTHRIA [None]
  - DYSPHAGIA [None]
  - INFLUENZA LIKE ILLNESS [None]
  - MYASTHENIA GRAVIS [None]
  - PARATHYROID TUMOUR BENIGN [None]
  - SPEECH DISORDER [None]
  - TONGUE DISORDER [None]
